FAERS Safety Report 18340235 (Version 1)
Quarter: 2020Q4

REPORT INFORMATION
  Report Type: Spontaneous
  Country: FR (occurrence: FR)
  Receive Date: 20201002
  Receipt Date: 20201002
  Transmission Date: 20210113
  Serious: Yes (Hospitalization)
  Sender: FDA-Public Use
  Company Number: FR-TEVA-2020-FR-1833357

PATIENT
  Age: 39 Year
  Sex: Male

DRUGS (5)
  1. SOTALOL (CHLORHYDRATE DE) [Suspect]
     Active Substance: SOTALOL
     Indication: INTENTIONAL OVERDOSE
     Dosage: UNIT DOSE1200MG
     Route: 048
     Dates: start: 20200730, end: 20200730
  2. IZALGI 500 MG/25 MG, GELULE [Suspect]
     Active Substance: ACETAMINOPHEN\OPIUM
     Indication: INTENTIONAL OVERDOSE
     Dosage: UNIT DOSE 16DF
     Route: 048
     Dates: start: 20200730, end: 20200730
  3. HYDROXYZINE (CHLORHYDRATE D^) [Suspect]
     Active Substance: HYDROXYZINE HYDROCHLORIDE
     Indication: INTENTIONAL OVERDOSE
     Dosage: UNIT DOSE 725MG
     Route: 048
     Dates: start: 20200730, end: 20200730
  4. DAFALGAN CODEINE [Suspect]
     Active Substance: ACETAMINOPHEN\CODEINE PHOSPHATE
     Indication: INTENTIONAL OVERDOSE
     Dosage: UNIT DOSE 4000MG
     Route: 048
     Dates: start: 20200730, end: 20200730
  5. ALPRAZOLAM. [Suspect]
     Active Substance: ALPRAZOLAM
     Indication: INTENTIONAL OVERDOSE
     Dosage: UNIT DOSE 4.5MG
     Route: 048
     Dates: start: 20200730, end: 20200730

REACTIONS (7)
  - Poisoning deliberate [Recovered/Resolved]
  - Prothrombin time ratio decreased [Recovered/Resolved]
  - Electrocardiogram QT prolonged [Recovered/Resolved]
  - Hypotension [Recovered/Resolved]
  - Somnolence [Recovered/Resolved]
  - Chest pain [Recovered/Resolved]
  - Bradycardia [Recovered/Resolved]

NARRATIVE: CASE EVENT DATE: 20200730
